FAERS Safety Report 17071938 (Version 1)
Quarter: 2019Q4

REPORT INFORMATION
  Report Type: Spontaneous
  Country: BR (occurrence: BR)
  Receive Date: 20191125
  Receipt Date: 20191125
  Transmission Date: 20200122
  Serious: Yes (Other)
  Sender: FDA-Public Use
  Company Number: BR-SA-2019SA310313

PATIENT
  Age: 43 Year
  Sex: Female
  Weight: 95 kg

DRUGS (6)
  1. AMITRIPTYLINE HYDROCHLORIDE. [Suspect]
     Active Substance: AMITRIPTYLINE HYDROCHLORIDE
     Indication: ANTIDEPRESSANT THERAPY
     Dosage: AT 5PM
     Route: 065
  2. STILNOX CR [Suspect]
     Active Substance: ZOLPIDEM TARTRATE
     Indication: INSOMNIA
  3. STILNOX CR [Suspect]
     Active Substance: ZOLPIDEM TARTRATE
     Indication: DEPRESSION
     Dosage: 1 TABLET AT NIGHT
     Route: 048
     Dates: start: 2009
  4. OLMETEC [Concomitant]
     Active Substance: OLMESARTAN MEDOXOMIL
     Indication: BLOOD PRESSURE MEASUREMENT
     Dosage: 1 TABLET IN THE MORNING
     Route: 048
     Dates: start: 1999
  5. VENLAFAXINE [Concomitant]
     Active Substance: VENLAFAXINE HYDROCHLORIDE
     Indication: ANTIDEPRESSANT THERAPY
     Dosage: 1 TABLET IN THE MORNING
     Route: 048
     Dates: start: 1999
  6. REDOXON [ASCORBIC ACID] [Concomitant]
     Indication: VITAMIN C
     Dosage: 1 EFFERVESCENT DAILY
     Route: 048
     Dates: start: 201910

REACTIONS (9)
  - Facial paralysis [Unknown]
  - Thirst [Unknown]
  - Swollen tongue [Unknown]
  - Depression [Unknown]
  - Crying [Unknown]
  - Dry mouth [Unknown]
  - Lip swelling [Unknown]
  - Product use in unapproved indication [Unknown]
  - Mouth swelling [Unknown]
